FAERS Safety Report 15325814 (Version 1)
Quarter: 2018Q3

REPORT INFORMATION
  Report Type: Spontaneous
  Country: US (occurrence: US)
  Receive Date: 20180822
  Receipt Date: 20180822
  Transmission Date: 20181010
  Serious: Yes (Hospitalization)
  Sender: FDA-Public Use
  Company Number: None

PATIENT
  Sex: Male

DRUGS (10)
  1. PROMETHAZINE 25MG [Concomitant]
  2. ACCUPRIL 5MG [Concomitant]
  3. OMEPRAZOLE 40MG [Concomitant]
     Active Substance: OMEPRAZOLE
  4. CARVEDILOL 3.125MG [Concomitant]
  5. CLOPIDOGREL [Concomitant]
     Active Substance: CLOPIDOGREL BISULFATE
  6. COQ 10 60MG [Concomitant]
  7. FISH OIL 300MG [Concomitant]
  8. PRAVASTATIN 10MG [Concomitant]
     Active Substance: PRAVASTATIN
  9. ASPIRIN 81MG [Concomitant]
     Active Substance: ASPIRIN
  10. IMATINIB [Suspect]
     Active Substance: IMATINIB
     Indication: GASTRIC CANCER
     Route: 048
     Dates: start: 20161114

REACTIONS (1)
  - Palatal swelling [None]
